FAERS Safety Report 24685218 (Version 1)
Quarter: 2024Q4

REPORT INFORMATION
  Report Type: Spontaneous
  Country: US (occurrence: None)
  Receive Date: 20241127
  Receipt Date: 20241127
  Transmission Date: 20250115
  Serious: Yes (Hospitalization)
  Sender: Public
  Company Number: None

PATIENT
  Age: 49 Year
  Sex: Male
  Weight: 89 kg

DRUGS (3)
  1. EMPAGLIFLOZIN [Suspect]
     Active Substance: EMPAGLIFLOZIN
     Indication: Diabetes mellitus
     Dosage: FREQUENCY : DAILY;?
     Route: 048
     Dates: start: 20220425, end: 20240602
  2. METFORMIN [Suspect]
     Active Substance: METFORMIN HYDROCHLORIDE
  3. OZEMPIC [Suspect]
     Active Substance: SEMAGLUTIDE

REACTIONS (9)
  - Fatigue [None]
  - Dyspepsia [None]
  - Glycosylated haemoglobin increased [None]
  - Malaise [None]
  - Therapy interrupted [None]
  - Diabetes mellitus [None]
  - Anion gap increased [None]
  - Blood pH decreased [None]
  - Blood bicarbonate decreased [None]

NARRATIVE: CASE EVENT DATE: 20240602
